FAERS Safety Report 9184281 (Version 1)
Quarter: 2012Q4

REPORT INFORMATION
  Report Type: 
  Country: CA (occurrence: CA)
  Receive Date: 20121031
  Receipt Date: 20121031
  Transmission Date: 20130627
  Serious: Yes (Disabling)
  Sender: FDA-Public Use
  Company Number: PHHY2012CA097436

PATIENT
  Age: 75 Year
  Sex: Female
  Weight: 65 kg

DRUGS (9)
  1. DIOVAN [Suspect]
     Dosage: 80mg every day
  2. ACTONEL [Concomitant]
  3. APO-RANITIDINE [Concomitant]
     Dosage: 300 mg, UNK
  4. PANTOLOC [Concomitant]
  5. TYLENOL W/CODEINE NO. 2 [Concomitant]
  6. VITAMIN B12 [Concomitant]
  7. VIT D [Concomitant]
  8. VOLTAREN EMULGEL [Concomitant]
  9. ZOPICLONE [Concomitant]

REACTIONS (8)
  - Ageusia [Recovered/Resolved]
  - Muscle spasms [Recovered/Resolved]
  - Arthralgia [Recovered/Resolved]
  - Asthenia [Recovered/Resolved]
  - Sluggishness [Recovered/Resolved]
  - Lethargy [Recovered/Resolved]
  - Fatigue [Recovered/Resolved]
  - Myalgia [Recovered/Resolved]
